FAERS Safety Report 7451177-5 (Version None)
Quarter: 2011Q2

REPORT INFORMATION
  Report Type: 
  Country: None (occurrence: None)
  Receive Date: 20110502
  Receipt Date: 20110420
  Transmission Date: 20111010
  Serious: Yes (Other)
  Sender: FDA-Public Use
  Company Number: PHHY2011FR34635

PATIENT
  Age: 69 Year
  Sex: Female

DRUGS (1)
  1. VIVELLE-DOT [Suspect]
     Indication: HOT FLUSH
     Dosage: 50 MCG, 2 DF, WEEKLY
     Route: 062
     Dates: start: 20100601

REACTIONS (2)
  - WEIGHT INCREASED [None]
  - BREAST SWELLING [None]
